FAERS Safety Report 16728195 (Version 1)
Quarter: 2019Q3

REPORT INFORMATION
  Report Type: Spontaneous
  Country: US (occurrence: US)
  Receive Date: 20190822
  Receipt Date: 20190822
  Transmission Date: 20191005
  Serious: No
  Sender: FDA-Public Use
  Company Number: US-009507513-1908USA008028

PATIENT
  Age: 24 Year
  Sex: Female

DRUGS (1)
  1. NEXPLANON [Suspect]
     Active Substance: ETONOGESTREL
     Indication: CONTRACEPTION
     Dosage: 1 DOSAGE FORM, ONE TIME, INTRAUTERINE
     Route: 015
     Dates: start: 201810, end: 201906

REACTIONS (2)
  - Incorrect route of product administration [Unknown]
  - Metrorrhagia [Unknown]

NARRATIVE: CASE EVENT DATE: 201810
